FAERS Safety Report 9373685 (Version 1)
Quarter: 2013Q2

REPORT INFORMATION
  Report Type: Spontaneous
  Country: CA (occurrence: CA)
  Receive Date: 20130627
  Receipt Date: 20130627
  Transmission Date: 20140414
  Serious: Yes (Death, Other)
  Sender: FDA-Public Use
  Company Number: CA-BAXTER-2013BAX024155

PATIENT
  Age: 74 Year
  Sex: Male

DRUGS (2)
  1. LIDOCAINE HCL 0.8% AND DEXTROSE 5% INJ [Suspect]
     Indication: VENTRICULAR TACHYCARDIA
     Route: 040
  2. LIDOCAINE HCL 0.8% AND DEXTROSE 5% INJ [Suspect]

REACTIONS (3)
  - Sepsis [Fatal]
  - Renal failure [Fatal]
  - Drug ineffective [Not Recovered/Not Resolved]
